FAERS Safety Report 17631658 (Version 22)
Quarter: 2025Q1

REPORT INFORMATION
  Report Type: Report from Study
  Country: US (occurrence: US)
  Receive Date: 20200406
  Receipt Date: 20250312
  Transmission Date: 20250409
  Serious: Yes (Other)
  Sender: TAKEDA
  Company Number: US-SHIRE-US202012480

PATIENT
  Sex: Female
  Weight: 92 kg

DRUGS (38)
  1. HUMAN IMMUNOGLOBULIN G\HYALURONIDASE RECOMBINANT HUMAN [Suspect]
     Active Substance: HUMAN IMMUNOGLOBULIN G\HYALURONIDASE (HUMAN RECOMBINANT)
     Indication: Immunodeficiency common variable
     Dosage: 20 GRAM, Q4WEEKS
     Dates: start: 20170214
  2. HUMAN IMMUNOGLOBULIN G\HYALURONIDASE RECOMBINANT HUMAN [Suspect]
     Active Substance: HUMAN IMMUNOGLOBULIN G\HYALURONIDASE (HUMAN RECOMBINANT)
     Dosage: 40 GRAM, Q4WEEKS
  3. HUMAN IMMUNOGLOBULIN G\HYALURONIDASE RECOMBINANT HUMAN [Suspect]
     Active Substance: HUMAN IMMUNOGLOBULIN G\HYALURONIDASE (HUMAN RECOMBINANT)
     Dosage: 40 GRAM, Q4WEEKS
     Dates: start: 20170306
  4. COVID-19 VACCINE NOS [Suspect]
     Active Substance: COVID-19 VACCINE
     Indication: COVID-19 immunisation
  5. NORVASC [Concomitant]
     Active Substance: AMLODIPINE BESYLATE
  6. IBUPROFEN [Concomitant]
     Active Substance: IBUPROFEN
  7. Lutein-Zeaxanthin [Concomitant]
  8. BRIMONIDINE [Concomitant]
     Active Substance: BRIMONIDINE TARTRATE
  9. LUTEIN [Concomitant]
     Active Substance: LUTEIN
  10. ZEAXANTHIN [Concomitant]
     Active Substance: ZEAXANTHIN
  11. QVAR [Concomitant]
     Active Substance: BECLOMETHASONE DIPROPIONATE
  12. DIPHENHYDRAMINE [Concomitant]
     Active Substance: DIPHENHYDRAMINE
  13. LIDOCAINE [Concomitant]
     Active Substance: LIDOCAINE
  14. SODIUM CHLORIDE [Concomitant]
     Active Substance: SODIUM CHLORIDE
  15. EPINEPHRINE [Concomitant]
     Active Substance: EPINEPHRINE
  16. FOLIC ACID [Concomitant]
     Active Substance: FOLIC ACID
  17. ATORVASTATIN CALCIUM [Concomitant]
     Active Substance: ATORVASTATIN CALCIUM
  18. CYANOCOBALAMIN [Concomitant]
     Active Substance: CYANOCOBALAMIN
  19. VITAMIN E [Concomitant]
     Active Substance: .ALPHA.-TOCOPHEROL
  20. LOSARTAN POTASSIUM [Concomitant]
     Active Substance: LOSARTAN POTASSIUM
  21. VITAMIN D [Concomitant]
     Active Substance: VITAMIN D NOS
  22. LUMIGAN [Concomitant]
     Active Substance: BIMATOPROST
  23. RESTORIL [Concomitant]
     Active Substance: TEMAZEPAM
  24. ASPIRIN [Concomitant]
     Active Substance: ASPIRIN
  25. XANAX [Concomitant]
     Active Substance: ALPRAZOLAM
  26. CLONIDINE [Concomitant]
     Active Substance: CLONIDINE
  27. APPLE CIDER VINEGAR [Concomitant]
     Active Substance: APPLE CIDER VINEGAR
  28. HERBALS\GARCINIA CAMBOGIA FRUIT [Concomitant]
     Active Substance: HERBALS\GARCINIA CAMBOGIA FRUIT
  29. ALPHAGAN P [Concomitant]
     Active Substance: BRIMONIDINE TARTRATE
  30. DOXYCYCLINE [Concomitant]
     Active Substance: DOXYCYCLINE
  31. HYDROCHLOROTHIAZIDE [Concomitant]
     Active Substance: HYDROCHLOROTHIAZIDE
  32. PERCOCET [Concomitant]
     Active Substance: ACETAMINOPHEN\OXYCODONE HYDROCHLORIDE
  33. ATORVASTATIN [Concomitant]
     Active Substance: ATORVASTATIN
  34. VITAMIN D2 [Concomitant]
     Active Substance: ERGOCALCIFEROL
  35. LOSARTAN [Concomitant]
     Active Substance: LOSARTAN
  36. DIPHENHYDRAMINE HYDROCHLORIDE [Concomitant]
     Active Substance: DIPHENHYDRAMINE HYDROCHLORIDE
  37. LORATADINE [Concomitant]
     Active Substance: LORATADINE
  38. BRIMONIDINE TARTRATE [Concomitant]
     Active Substance: BRIMONIDINE TARTRATE

REACTIONS (33)
  - Glaucoma [Unknown]
  - Seizure [Recovered/Resolved]
  - Sinusitis [Unknown]
  - Urinary tract infection [Unknown]
  - Fall [Unknown]
  - Limb injury [Unknown]
  - Nasal injury [Unknown]
  - Eye contusion [Unknown]
  - Scar [Unknown]
  - COVID-19 [Not Recovered/Not Resolved]
  - Ear pain [Unknown]
  - Herpes zoster [Unknown]
  - Multiple allergies [Unknown]
  - Hypoaesthesia oral [Unknown]
  - Insurance issue [Unknown]
  - Inflammation [Unknown]
  - Seasonal allergy [Unknown]
  - Infection [Unknown]
  - Intervertebral disc protrusion [Unknown]
  - Nerve compression [Unknown]
  - Product use issue [Unknown]
  - Product dose omission issue [Unknown]
  - Throat irritation [Unknown]
  - Body temperature abnormal [Unknown]
  - Nasopharyngitis [Unknown]
  - Rhinorrhoea [Unknown]
  - Insomnia [Unknown]
  - Pruritus [Unknown]
  - Infusion site mass [Unknown]
  - Blood pressure increased [Unknown]
  - Pyrexia [Unknown]
  - Fatigue [Unknown]
  - Infusion site pruritus [Unknown]
